FAERS Safety Report 6645386-2 (Version None)
Quarter: 2010Q1

REPORT INFORMATION
  Report Type: 
  Country: None (occurrence: None)
  Receive Date: 20100322
  Receipt Date: 20100312
  Transmission Date: 20100710
  Serious: Yes (Hospitalization)
  Sender: FDA-Public Use
  Company Number: JP-ABBOTT-10P-087-0628652-00

PATIENT
  Sex: Male

DRUGS (15)
  1. CEFDINIR [Suspect]
     Indication: INFECTION PROPHYLAXIS
     Route: 048
     Dates: start: 20100217, end: 20100218
  2. CEFDINIR [Suspect]
     Indication: CATHETERISATION CARDIAC
  3. PARIET [Concomitant]
     Indication: DRUG USE FOR UNKNOWN INDICATION
     Route: 048
     Dates: start: 20100217, end: 20100219
  4. IOMERON-150 [Concomitant]
     Indication: DRUG USE FOR UNKNOWN INDICATION
     Route: 050
     Dates: start: 20100217, end: 20100217
  5. TANATRIL [Concomitant]
     Indication: DRUG USE FOR UNKNOWN INDICATION
     Route: 048
     Dates: start: 20090105
  6. CONIEL [Concomitant]
     Indication: DRUG USE FOR UNKNOWN INDICATION
     Route: 048
     Dates: start: 20090105
  7. AMARYL [Concomitant]
     Indication: DRUG USE FOR UNKNOWN INDICATION
     Route: 048
     Dates: start: 20091026
  8. BUFFERIN [Concomitant]
     Indication: DRUG USE FOR UNKNOWN INDICATION
     Route: 048
     Dates: start: 20020101
  9. SIGMART [Concomitant]
     Indication: DRUG USE FOR UNKNOWN INDICATION
     Route: 048
     Dates: start: 20020101
  10. SELBEX [Concomitant]
     Indication: DRUG USE FOR UNKNOWN INDICATION
     Route: 048
     Dates: start: 20020101
  11. BASEN [Concomitant]
     Indication: DRUG USE FOR UNKNOWN INDICATION
     Route: 048
     Dates: start: 20020101
  12. EURODIN [Concomitant]
     Indication: DRUG USE FOR UNKNOWN INDICATION
     Route: 048
     Dates: start: 20020101
  13. ASPENON [Concomitant]
     Indication: DRUG USE FOR UNKNOWN INDICATION
     Route: 048
     Dates: start: 20090223
  14. METHYCOBAL [Concomitant]
     Indication: DRUG USE FOR UNKNOWN INDICATION
     Route: 048
     Dates: start: 20091207
  15. PANALDINE [Concomitant]
     Indication: DRUG USE FOR UNKNOWN INDICATION
     Route: 048
     Dates: start: 20020101

REACTIONS (3)
  - DRUG ERUPTION [None]
  - LYMPHOCYTE STIMULATION TEST POSITIVE [None]
  - RENAL IMPAIRMENT [None]
